FAERS Safety Report 5208329-4 (Version None)
Quarter: 2007Q1

REPORT INFORMATION
  Report Type: 
  Country: None (occurrence: None)
  Receive Date: 20070110
  Receipt Date: 20070110
  Transmission Date: 20070707
  Serious: Yes (Hospitalization)
  Sender: FDA-Public Use
  Company Number: None

PATIENT
  Sex: Male
  Weight: 71 kg

DRUGS (10)
  1. BEVACIZUMAB 15MG/ M2 [Suspect]
     Indication: MESOTHELIOMA
     Dosage: 1084MG Q 21 DAYS IV
     Route: 042
     Dates: start: 20060707, end: 20061020
  2. ERLOTINIB 150MG [Suspect]
     Indication: MESOTHELIOMA
     Dosage: 150MG QD PO
     Route: 048
     Dates: start: 20060707, end: 20061109
  3. LEVOFLOXACIN [Concomitant]
  4. AMBIEN [Concomitant]
  5. LIPITOR [Concomitant]
  6. METAMUCIL [Concomitant]
  7. MULTI-VITAMIN [Concomitant]
  8. VITAMIN E [Concomitant]
  9. XANAX [Concomitant]
  10. TYLENOL [Concomitant]

REACTIONS (8)
  - IMPAIRED WORK ABILITY [None]
  - INCISION SITE COMPLICATION [None]
  - INFECTION [None]
  - INFLAMMATION [None]
  - LUNG NEOPLASM [None]
  - NEOPLASM MALIGNANT [None]
  - PNEUMONIA [None]
  - WEIGHT DECREASED [None]
